FAERS Safety Report 23453724 (Version 3)
Quarter: 2024Q2

REPORT INFORMATION
  Report Type: Spontaneous
  Country: US (occurrence: US)
  Receive Date: 20240129
  Receipt Date: 20240522
  Transmission Date: 20240715
  Serious: No
  Sender: FDA-Public Use
  Company Number: US-SA-SAC20240123000350

PATIENT
  Age: 75 Year
  Sex: Male

DRUGS (1)
  1. DUPIXENT [Suspect]
     Active Substance: DUPILUMAB
     Indication: Dermatitis atopic
     Dosage: 300 MG, QOW
     Route: 058
     Dates: start: 20230918

REACTIONS (5)
  - Skin hyperpigmentation [Recovered/Resolved]
  - Eyelids pruritus [Unknown]
  - Pruritus [Unknown]
  - Dry eye [Unknown]
  - Eye pruritus [Recovered/Resolved]

NARRATIVE: CASE EVENT DATE: 20240118
